FAERS Safety Report 4721656-X (Version None)
Quarter: 2005Q3

REPORT INFORMATION
  Report Type: 
  Country: None (occurrence: None)
  Receive Date: 20050721
  Receipt Date: 20050203
  Transmission Date: 20060218
  Serious: No
  Sender: FDA-Public Use
  Company Number: US-BRISTOL-MYERS SQUIBB COMPANY-12851846

PATIENT
  Age: 52 Year
  Sex: Female
  Weight: 38 kg

DRUGS (3)
  1. COUMADIN [Suspect]
     Indication: ATRIAL FIBRILLATION
  2. WARFARIN SODIUM [Suspect]
     Indication: ATRIAL FIBRILLATION
     Dosage: 10/2003 - DOSAGE = 2 MG 2003 - DOSAGE = 4-5 MG CURRENT DOSAGE = 8 MG
     Dates: start: 20030101, end: 20040701
  3. SOTALOL HCL [Concomitant]
     Dates: start: 20030101

REACTIONS (9)
  - ABDOMINAL PAIN [None]
  - BLOOD BILIRUBIN INCREASED [None]
  - DIARRHOEA [None]
  - FLATULENCE [None]
  - FOOD INTOLERANCE [None]
  - INTERNATIONAL NORMALISED RATIO DECREASED [None]
  - MUSCLE SPASMS [None]
  - MUSCLE TIGHTNESS [None]
  - PROTHROMBIN TIME SHORTENED [None]
